FAERS Safety Report 6542787-8 (Version None)
Quarter: 2010Q1

REPORT INFORMATION
  Report Type: 
  Country: None (occurrence: None)
  Receive Date: 20100114
  Receipt Date: 20100105
  Transmission Date: 20100710
  Serious: Yes (Hospitalization)
  Sender: FDA-Public Use
  Company Number: 2009SP003081

PATIENT
  Age: 57 Year
  Sex: Female
  Weight: 140 kg

DRUGS (9)
  1. CICLESONIDE HFA [Suspect]
     Indication: RHINITIS PERENNIAL
     Dosage: 160 UG; QD; NASAL
     Route: 045
     Dates: start: 20091029, end: 20091112
  2. ATACAND [Concomitant]
  3. FUROSEMIDE [Concomitant]
  4. POTASSIUM [Concomitant]
  5. LEVOXYL [Concomitant]
  6. GLUCOSAMINE [Concomitant]
  7. VITAMIN B-12 [Concomitant]
  8. FISH OIL [Concomitant]
  9. ADVIL [Concomitant]

REACTIONS (4)
  - ABDOMINAL ADHESIONS [None]
  - ABSCESS INTESTINAL [None]
  - DIVERTICULAR PERFORATION [None]
  - SEROSITIS [None]
